FAERS Safety Report 7744003-8 (Version None)
Quarter: 2011Q3

REPORT INFORMATION
  Report Type: 
  Country: None (occurrence: None)
  Receive Date: 20110912
  Receipt Date: 20110420
  Transmission Date: 20111222
  Serious: No
  Sender: FDA-Public Use
  Company Number: US-BAYER-2011-034763

PATIENT
  Sex: Female

DRUGS (1)
  1. MIRENA [Suspect]
     Indication: CONTRACEPTION
     Dosage: 20 MCG/24HR, UNK
     Route: 015

REACTIONS (8)
  - MEDICATION ERROR [None]
  - ABDOMINAL DISCOMFORT [None]
  - VAGINAL DISCHARGE [None]
  - ASTHENIA [None]
  - METRORRHAGIA [None]
  - AMENORRHOEA [None]
  - DIZZINESS [None]
  - FATIGUE [None]
